FAERS Safety Report 25166044 (Version 2)
Quarter: 2025Q2

REPORT INFORMATION
  Report Type: Spontaneous
  Country: CN (occurrence: CN)
  Receive Date: 20250407
  Receipt Date: 20250410
  Transmission Date: 20250716
  Serious: Yes (Hospitalization, Other)
  Sender: OCTAPHARMA
  Company Number: CN-OCTA-2025000261

PATIENT
  Age: 83 Year
  Sex: Female

DRUGS (1)
  1. ALBUMIN HUMAN [Suspect]
     Active Substance: ALBUMIN HUMAN
     Indication: Nutritional supplementation
     Route: 042
     Dates: start: 20250312, end: 20250312

REACTIONS (3)
  - Temperature intolerance [Recovering/Resolving]
  - Dysphoria [Recovering/Resolving]
  - Hypersensitivity [Recovering/Resolving]

NARRATIVE: CASE EVENT DATE: 20250312
